FAERS Safety Report 5146302-5 (Version None)
Quarter: 2006Q4

REPORT INFORMATION
  Report Type: 
  Country: None (occurrence: None)
  Receive Date: 20061108
  Receipt Date: 20061011
  Transmission Date: 20070319
  Serious: Yes (Hospitalization)
  Sender: FDA-Public Use
  Company Number: ZA-ELI_LILLY_AND_COMPANY-ZA200610002046

PATIENT
  Age: 75 Year
  Sex: Female

DRUGS (7)
  1. CYMBALTA [Suspect]
     Indication: MAJOR DEPRESSION
     Dosage: 60 MG, DAILY (1/D)
     Route: 048
     Dates: start: 20060909
  2. LANTANON [Concomitant]
     Indication: DEPRESSION
  3. FLUTICASONE PROPIONATE W/SALMETEROL XINAFOATE [Concomitant]
     Indication: ASTHMA
  4. FENOTEROL HYDROBROMIDE W/IPRATROPIUM BROMIDE [Concomitant]
     Indication: ASTHMA
  5. MONTELUKAST SODIUM [Concomitant]
     Indication: ASTHMA
  6. LIOTHYRONINE SODIUM [Concomitant]
     Indication: HYPOTHYROIDISM
  7. DILTIAZEM HYDROCHLORIDE [Concomitant]
     Indication: ANGINA PECTORIS

REACTIONS (4)
  - COLONIC POLYP [None]
  - CSF PROTEIN INCREASED [None]
  - GUILLAIN-BARRE SYNDROME [None]
  - IRON DEFICIENCY ANAEMIA [None]
